FAERS Safety Report 6945966-0 (Version None)
Quarter: 2010Q3

REPORT INFORMATION
  Report Type: 
  Country: None (occurrence: None)
  Receive Date: 20100824
  Receipt Date: 20100811
  Transmission Date: 20110219
  Serious: Yes (Hospitalization)
  Sender: FDA-Public Use
  Company Number: 2010MA001693

PATIENT

DRUGS (1)
  1. SULFATRIM [Suspect]

REACTIONS (14)
  - ARTHROPATHY [None]
  - BILIARY TRACT DISORDER [None]
  - CARDIAC DISORDER [None]
  - DRUG RASH WITH EOSINOPHILIA AND SYSTEMIC SYMPTOMS [None]
  - LUNG DISORDER [None]
  - LYMPHADENOPATHY [None]
  - MULTI-ORGAN DISORDER [None]
  - MYOCARDITIS [None]
  - NERVOUS SYSTEM DISORDER [None]
  - PANCREATIC DISORDER [None]
  - PHARYNGEAL DISORDER [None]
  - RENAL DISORDER [None]
  - STILL'S DISEASE ADULT ONSET [None]
  - VITAMIN D DEFICIENCY [None]
